FAERS Safety Report 4348616-5 (Version None)
Quarter: 2004Q2

REPORT INFORMATION
  Report Type: 
  Country: None (occurrence: None)
  Receive Date: 20040427
  Receipt Date: 20040326
  Transmission Date: 20050107
  Serious: Yes (Disabling)
  Sender: FDA-Public Use
  Company Number: US-BRISTOL-MYERS SQUIBB COMPANY-12543617

PATIENT
  Age: 58 Year
  Sex: Male
  Weight: 86 kg

DRUGS (11)
  1. ERBITUX [Suspect]
     Indication: COLORECTAL CANCER METASTATIC
     Dosage: HELD ON 23-MAR-2004 250MG/M2=574.5 MG
     Route: 042
     Dates: start: 20040316, end: 20040316
  2. IRINOTECAN [Concomitant]
     Indication: COLORECTAL CANCER
  3. BENADRYL [Concomitant]
  4. ZANTAC [Concomitant]
  5. GLUCOPHAGE [Concomitant]
     Dosage: 2 - 100 MG TABLETS/DAY
  6. AMARYL [Concomitant]
  7. DILAUDID [Concomitant]
     Indication: PAIN
     Dosage: 1-2 TABS EVERY 4-6 HOURS.
  8. HYDROCODONE + ACETAMINOPHEN [Concomitant]
     Dosage: HYDROCODONE/APAP-10/500 6 - 8 PER DAY.
  9. TEMAZEPAM [Concomitant]
     Dosage: 2 - 30 MG/DAY
  10. ALOXI [Concomitant]
  11. HEXADROL [Concomitant]

REACTIONS (2)
  - HERPES ZOSTER [None]
  - RASH PAPULAR [None]
